FAERS Safety Report 22630953 (Version 1)
Quarter: 2023Q2

REPORT INFORMATION
  Report Type: Spontaneous
  Country: US (occurrence: US)
  Receive Date: 20230622
  Receipt Date: 20230622
  Transmission Date: 20230721
  Serious: No
  Sender: FDA-Public Use
  Company Number: US-INCYTE CORPORATION-2023IN005778

PATIENT

DRUGS (1)
  1. OPZELURA [Suspect]
     Active Substance: RUXOLITINIB PHOSPHATE
     Dosage: 60 MILLIGRAM, BID, APPLY A THIN LAYER TO AFFECTED AREA(S) OF THE BODY EXTERNALLY TWICE DAILY AS DIRE
     Route: 061
     Dates: start: 20230301

REACTIONS (1)
  - Asthma [Unknown]
